FAERS Safety Report 18995886 (Version 1)
Quarter: 2021Q1

REPORT INFORMATION
  Report Type: Spontaneous
  Country: US (occurrence: US)
  Receive Date: 20210311
  Receipt Date: 20210311
  Transmission Date: 20210420
  Serious: No
  Sender: FDA-Public Use
  Company Number: US-ALLERGAN-2045175US

PATIENT
  Sex: Female

DRUGS (3)
  1. VIIBRYD [Suspect]
     Active Substance: VILAZODONE HYDROCHLORIDE
     Dosage: 10 MG, QD
     Dates: start: 202011, end: 202011
  2. VIIBRYD [Suspect]
     Active Substance: VILAZODONE HYDROCHLORIDE
     Indication: DEPRESSION
     Dosage: 40 MG, QD
     Dates: start: 202011, end: 20201116
  3. VIIBRYD [Suspect]
     Active Substance: VILAZODONE HYDROCHLORIDE
     Dosage: 20 MG, QD
     Dates: start: 202011, end: 202011

REACTIONS (11)
  - Hypertension [Recovering/Resolving]
  - Sleep disorder [Recovering/Resolving]
  - Diarrhoea [Recovering/Resolving]
  - Inappropriate schedule of product administration [Unknown]
  - Nightmare [Recovering/Resolving]
  - Feeling abnormal [Recovering/Resolving]
  - Eating disorder [Recovering/Resolving]
  - Dysgraphia [Recovering/Resolving]
  - Vision blurred [Not Recovered/Not Resolved]
  - Palpitations [Recovering/Resolving]
  - Dizziness [Not Recovered/Not Resolved]

NARRATIVE: CASE EVENT DATE: 202011
